FAERS Safety Report 4954251-8 (Version None)
Quarter: 2006Q1

REPORT INFORMATION
  Report Type: 
  Country: None (occurrence: None)
  Receive Date: 20060327
  Receipt Date: 20050831
  Transmission Date: 20060701
  Serious: Yes (Hospitalization)
  Sender: FDA-Public Use
  Company Number: US-MERCK-0509USA00084

PATIENT
  Age: 53 Year
  Sex: Female
  Weight: 91 kg

DRUGS (3)
  1. GLUCOTROL [Concomitant]
     Indication: DIABETES MELLITUS NON-INSULIN-DEPENDENT
     Route: 048
  2. VIOXX [Suspect]
     Indication: ARTHRITIS
     Route: 048
     Dates: start: 19990101, end: 20030101
  3. GLUCOPHAGE [Concomitant]
     Route: 048

REACTIONS (12)
  - ANXIETY [None]
  - CEREBROVASCULAR ACCIDENT [None]
  - CONVULSION [None]
  - DEPRESSION [None]
  - DIVERTICULUM INTESTINAL [None]
  - HAEMORRHOIDS [None]
  - HEADACHE [None]
  - HEART INJURY [None]
  - LABILE HYPERTENSION [None]
  - LOWER GASTROINTESTINAL HAEMORRHAGE [None]
  - RADIAL NERVE PALSY [None]
  - URINARY INCONTINENCE [None]
